FAERS Safety Report 5594996-2 (Version None)
Quarter: 2008Q1

REPORT INFORMATION
  Report Type: 
  Country: None (occurrence: None)
  Receive Date: 20080117
  Receipt Date: 20080111
  Transmission Date: 20080703
  Serious: Yes (Hospitalization)
  Sender: FDA-Public Use
  Company Number: DE-JNJFOC-20080103214

PATIENT
  Sex: Male

DRUGS (2)
  1. REMICADE [Suspect]
     Dosage: 4TH INFUSION (UNSPECIFIED DATE AND DOSE)
     Route: 042
  2. REMICADE [Suspect]
     Indication: CROHN'S DISEASE
     Dosage: 3 INFUSIONS (UNSPECIFIED DATES AND DOSES)
     Route: 042

REACTIONS (2)
  - INFECTION [None]
  - SEPSIS [None]
